FAERS Safety Report 6889395-7 (Version None)
Quarter: 2010Q3

REPORT INFORMATION
  Report Type: 
  Country: None (occurrence: None)
  Receive Date: 20100730
  Receipt Date: 20080229
  Transmission Date: 20110219
  Serious: No
  Sender: FDA-Public Use
  Company Number: US-PFIZER INC-2008016100

PATIENT
  Age: 63 Year
  Sex: Female

DRUGS (7)
  1. LIPITOR [Suspect]
     Indication: BLOOD CHOLESTEROL INCREASED
     Dates: start: 20030101
  2. COLESTID [Suspect]
     Indication: BLOOD CHOLESTEROL INCREASED
  3. MEVACOR [Suspect]
     Indication: BLOOD CHOLESTEROL INCREASED
  4. ZOCOR [Suspect]
     Indication: BLOOD CHOLESTEROL INCREASED
  5. ZETIA [Suspect]
     Indication: BLOOD CHOLESTEROL INCREASED
     Dates: start: 20040101, end: 20070301
  6. WARFARIN SODIUM [Concomitant]
  7. ZANTAC [Concomitant]

REACTIONS (9)
  - BLOOD CHOLESTEROL ABNORMAL [None]
  - COLITIS [None]
  - DYSPEPSIA [None]
  - DYSPNOEA [None]
  - GASTROOESOPHAGEAL REFLUX DISEASE [None]
  - HEADACHE [None]
  - MUSCULAR WEAKNESS [None]
  - MUSCULOSKELETAL DISCOMFORT [None]
  - SENSATION OF HEAVINESS [None]
